FAERS Safety Report 4921329-4 (Version None)
Quarter: 2006Q1

REPORT INFORMATION
  Report Type: 
  Country: None (occurrence: None)
  Receive Date: 20060224
  Receipt Date: 20060217
  Transmission Date: 20060701
  Serious: Yes (Other)
  Sender: FDA-Public Use
  Company Number: PHNU2006DE00962

PATIENT
  Sex: Female

DRUGS (1)
  1. FEMARA [Suspect]
     Route: 048
     Dates: start: 20050101

REACTIONS (1)
  - PYREXIA [None]
